FAERS Safety Report 9818923 (Version 1)
Quarter: 2014Q1

REPORT INFORMATION
  Report Type: Spontaneous
  Country: NL (occurrence: NL)
  Receive Date: 20140115
  Receipt Date: 20140115
  Transmission Date: 20141002
  Serious: Yes (Other)
  Sender: FDA-Public Use
  Company Number: NL-PFIZER INC-2014009029

PATIENT
  Age: 62 Year
  Sex: Female

DRUGS (1)
  1. EXEMESTAAN [Suspect]
     Indication: BREAST CANCER
     Dosage: 25 MG, 1X/DAY
     Dates: start: 20131007

REACTIONS (1)
  - Anticholinergic syndrome [Recovered/Resolved]
